FAERS Safety Report 4608512-2 (Version None)
Quarter: 2005Q1

REPORT INFORMATION
  Report Type: 
  Country: None (occurrence: None)
  Receive Date: 20050315
  Receipt Date: 20050208
  Transmission Date: 20050727
  Serious: Yes (Other)
  Sender: FDA-Public Use
  Company Number: AU-NOVOPROD-242168

PATIENT
  Age: 34 Year
  Sex: Female
  Weight: 230 kg

DRUGS (30)
  1. ACTRAPID [Suspect]
     Indication: DIABETES MELLITUS INSULIN-DEPENDENT
     Dosage: 188 IU, UNK
     Route: 058
     Dates: start: 20041125, end: 20041207
  2. ACTRAPID [Suspect]
     Dosage: 190 IU, UNK
     Route: 058
     Dates: start: 20041222, end: 20041229
  3. PROTAPHANE PENFILL [Suspect]
     Indication: DIABETES MELLITUS INSULIN-DEPENDENT
     Dosage: 56 IU, UNK
     Route: 058
     Dates: start: 20041125, end: 20041207
  4. PROTAPHANE PENFILL [Suspect]
     Dosage: UNK, UNK
     Route: 058
     Dates: start: 20041222, end: 20041229
  5. ACCU CHECK ACTIVE TEST STRIP [Concomitant]
  6. ACTRAPID [Concomitant]
     Dosage: 100IU/ML
  7. AUSGEM [Concomitant]
     Dosage: 600 MG 1 BD AC.
  8. BRICANYL [Concomitant]
     Dosage: 500 MCG/DOSE 2 INH. 4 HOURLY PRN
  9. CALTRATE [Concomitant]
     Dosage: 1500 MG/1 DAILY
  10. CORTICOSTEROIDS [Concomitant]
     Dosage: 1% CREAM APPLY BD PRN.
  11. DIAZEPAM [Concomitant]
     Dosage: 5 MG, UNK
     Dates: start: 20050309
  12. GAVISCON LIQUID ^FERRING^ [Concomitant]
     Dosage: 500-267 MG-160 MG/10 ML-10-20 ML
  13. GLUCOBAY [Concomitant]
     Dosage: 100 MG/2 TID
     Route: 048
  14. GLYADE [Concomitant]
     Dosage: 80 MG 2 BD AC.
  15. HEPARIN [Concomitant]
     Dosage: 5000 U/5 ML
  16. INDOCIN [Concomitant]
     Dosage: 100 MG 1 PER RECTUM DAILY
  17. IPRATRIN [Concomitant]
     Dosage: 500 MCG/ML USE IN NEBULISER 6 H.
  18. MAXOLON [Concomitant]
     Dosage: 10 MG 1 TID  PRN
  19. METFORMIN HCL [Concomitant]
     Dosage: 100 MG 1 TID CC
  20. MS CONTIN [Concomitant]
     Dosage: 100 MG T1BD
  21. MS CONTIN [Concomitant]
     Dosage: 1 BD MDU
  22. OXIS TURBUHALER ^ASTRAZENECA^ [Concomitant]
     Dosage: 12 MCG/DOSE, 1-2 INHAL BD.
  23. PANAMAX [Concomitant]
     Dosage: 1-2 / 4 HOURS PRN
  24. PROTAPHANE PENFILL [Concomitant]
     Dosage: 100 IU, UNK
  25. PULMICORT [Concomitant]
     Dosage: 100 MCG/INHAL. 2 INH. BD AS REQ.
  26. SOMAC [Concomitant]
     Dosage: 40 MG/2 NOCTE
  27. STEMETIL ^AVENTIS PHARMA^ [Concomitant]
     Dosage: 5 MG 1 TID PRN.
  28. TEGRETOL [Concomitant]
     Dosage: 200 MG 2 BD
  29. VENTOLIN                           /00139501/ [Concomitant]
     Dosage: 2.5 MG/2.5 ML
  30. ZACTIN [Concomitant]
     Dosage: 20 MG 2 DAILY

REACTIONS (4)
  - CELLULITIS [None]
  - DYSPNOEA [None]
  - INJECTION SITE INFLAMMATION [None]
  - OEDEMA [None]
